FAERS Safety Report 26088766 (Version 2)
Quarter: 2025Q4

REPORT INFORMATION
  Report Type: Spontaneous
  Country: None (occurrence: JP)
  Receive Date: 20251125
  Receipt Date: 20251205
  Transmission Date: 20260119
  Serious: Yes (Death, Hospitalization)
  Sender: ALNYLAM PHARMACEUTICALS
  Company Number: JP-ALNYLAM PHARMACEUTICALS, INC.-ALN-2025-007518

PATIENT
  Age: 76 Year

DRUGS (1)
  1. AMVUTTRA [Suspect]
     Active Substance: VUTRISIRAN
     Indication: Cardiac amyloidosis
     Dosage: 25 MILLIGRAM, ONCE EVERY 3 MONTHS

REACTIONS (3)
  - Joint abscess [Fatal]
  - Septic shock [Fatal]
  - Pneumonia [Unknown]
